FAERS Safety Report 13790852 (Version 2)
Quarter: 2017Q3

REPORT INFORMATION
  Report Type: Spontaneous
  Country: US (occurrence: US)
  Receive Date: 20170725
  Receipt Date: 20170906
  Transmission Date: 20171127
  Serious: Yes (Other)
  Sender: FDA-Public Use
  Company Number: US-PFIZER INC-2016422696

PATIENT
  Age: 53 Year
  Sex: Female
  Weight: 78.5 kg

DRUGS (15)
  1. LYRICA [Suspect]
     Active Substance: PREGABALIN
     Indication: COCCYDYNIA
     Dosage: 150 MG, 2X/DAY
     Route: 048
  2. ATARAX [Concomitant]
     Active Substance: HYDROXYZINE HYDROCHLORIDE
     Indication: ANXIETY
     Dosage: UNK UNK, AS NEEDED (25 MG TABLET, 2-3 TAB, PO, QHS)
     Route: 048
  3. CYMBALTA [Concomitant]
     Active Substance: DULOXETINE HYDROCHLORIDE
     Dosage: 60 MG, DAILY
     Route: 048
  4. ATARAX [Concomitant]
     Active Substance: HYDROXYZINE HYDROCHLORIDE
     Indication: SLEEP DISORDER
  5. CYMBALTA [Concomitant]
     Active Substance: DULOXETINE HYDROCHLORIDE
     Dosage: 30 MG, 2X/DAY (1 CAP)
     Route: 048
  6. DULOXETINE. [Concomitant]
     Active Substance: DULOXETINE
     Indication: PAIN
  7. LYRICA [Suspect]
     Active Substance: PREGABALIN
     Indication: PELVIC PAIN
     Dosage: 150 MG, 2X/DAY
     Route: 048
  8. LYRICA [Suspect]
     Active Substance: PREGABALIN
     Indication: FIBROMYALGIA
  9. ATARAX [Concomitant]
     Active Substance: HYDROXYZINE HYDROCHLORIDE
     Indication: AGITATION
  10. HYDROXYZINE [Concomitant]
     Active Substance: HYDROXYZINE HYDROCHLORIDE
     Indication: AGITATION
     Dosage: UNK UNK, 1X/DAY (TWO OR THREE TABLETS)
  11. HYDROXYZINE [Concomitant]
     Active Substance: HYDROXYZINE HYDROCHLORIDE
     Indication: SLEEP DISORDER
  12. OXYCODONE AND ACETAMINOPHEN [Concomitant]
     Active Substance: ACETAMINOPHEN\OXYCODONE HYDROCHLORIDE
     Indication: PAIN
     Dosage: UNK UNK, AS NEEDED [OXYCODONE:5MG]/[ACETAMINOPHEN:325MG] (ONE TABLET BY MOUTH EVERY 6 HOURS)
     Route: 048
  13. OXYCODONE AND ACETAMINOPHEN [Concomitant]
     Active Substance: ACETAMINOPHEN\OXYCODONE HYDROCHLORIDE
     Dosage: UNK (2 TO 2.5 PER DAY)
  14. ESTRACE [Concomitant]
     Active Substance: ESTRADIOL
     Dosage: UNK (DAILY X 2 WEEKS AND THEN 3X/WEEK)
     Route: 067
  15. DULOXETINE. [Concomitant]
     Active Substance: DULOXETINE
     Indication: DEPRESSION
     Dosage: 60 MG, 1X/DAY (30 MG TWO CAPSULE)
     Route: 048

REACTIONS (7)
  - Fractured coccyx [Unknown]
  - Feeling abnormal [Unknown]
  - Spina bifida [Unknown]
  - Mobility decreased [Recovering/Resolving]
  - Pain [Unknown]
  - Tethered cord syndrome [Unknown]
  - Fall [Unknown]

NARRATIVE: CASE EVENT DATE: 20170711
